FAERS Safety Report 4359428-0 (Version None)
Quarter: 2004Q2

REPORT INFORMATION
  Report Type: 
  Country: None (occurrence: None)
  Receive Date: 20040512
  Receipt Date: 20040428
  Transmission Date: 20050107
  Serious: Yes (Hospitalization)
  Sender: FDA-Public Use
  Company Number: EWC040438935

PATIENT
  Age: 66 Year
  Sex: Female

DRUGS (5)
  1. FORTEO [Suspect]
     Indication: OSTEOPOROSIS
     Dosage: 20 MG
     Dates: start: 20031201, end: 20040210
  2. CALCICHEW (CALCIUM CARBONATE) [Concomitant]
  3. BETAHISTINE [Concomitant]
  4. DILTIAZEM HYDROCHLORIDE [Concomitant]
  5. TRAMADOL HCL [Concomitant]

REACTIONS (4)
  - ATRIAL FIBRILLATION [None]
  - PULMONARY EMBOLISM [None]
  - PULMONARY INFARCTION [None]
  - THROMBOSIS [None]
